FAERS Safety Report 23715639 (Version 1)
Quarter: 2024Q2

REPORT INFORMATION
  Report Type: Spontaneous
  Country: AU (occurrence: AU)
  Receive Date: 20240408
  Receipt Date: 20240408
  Transmission Date: 20240715
  Serious: Yes (Other)
  Sender: FDA-Public Use
  Company Number: AU-ROCHE-3533676

PATIENT
  Age: 32 Year
  Sex: Male

DRUGS (4)
  1. CLONAZEPAM [Suspect]
     Active Substance: CLONAZEPAM
     Indication: Product used for unknown indication
  2. DIAZEPAM [Suspect]
     Active Substance: DIAZEPAM
     Indication: Product used for unknown indication
  3. MIRTAZAPINE [Suspect]
     Active Substance: MIRTAZAPINE
     Indication: Product used for unknown indication
  4. PREGABALIN [Suspect]
     Active Substance: PREGABALIN
     Indication: Product used for unknown indication

REACTIONS (2)
  - Pneumonia aspiration [Unknown]
  - Toxicity to various agents [Unknown]
